FAERS Safety Report 26136511 (Version 2)
Quarter: 2025Q4

REPORT INFORMATION
  Report Type: Report from Study
  Country: GB (occurrence: GB)
  Receive Date: 20251209
  Receipt Date: 20251218
  Transmission Date: 20260118
  Serious: Yes (Other)
  Sender: ABBVIE
  Company Number: GB-ABBVIE-6575696

PATIENT
  Age: 50 Year
  Sex: Male

DRUGS (1)
  1. SKYRIZI [Suspect]
     Active Substance: RISANKIZUMAB-RZAA
     Indication: Crohn^s disease
     Dosage: DOSE: 1.00 EA, FORM STRENGTH - 360MG/2.4ML. DOSE FORM - SOLUTION FOR INJECTION CARTRIDGE ON-BODY ...
     Route: 058
     Dates: start: 20250811

REACTIONS (2)
  - Cholecystectomy [Recovered/Resolved]
  - Influenza [Unknown]

NARRATIVE: CASE EVENT DATE: 20250101
